FAERS Safety Report 9632856 (Version 4)
Quarter: 2016Q3

REPORT INFORMATION
  Report Type: Report from Study
  Country: CA (occurrence: CA)
  Receive Date: 20131018
  Receipt Date: 20160718
  Transmission Date: 20161109
  Serious: Yes (Other)
  Sender: FDA-Public Use
  Company Number: PHHY2013CA115812

PATIENT
  Age: 39 Year
  Sex: Female

DRUGS (1)
  1. GILENYA [Suspect]
     Active Substance: FINGOLIMOD HYDROCHLORIDE
     Indication: RELAPSING-REMITTING MULTIPLE SCLEROSIS
     Dosage: 0.5 MG, QD
     Route: 048
     Dates: start: 20131011

REACTIONS (5)
  - Supraventricular extrasystoles [Unknown]
  - Fatigue [Unknown]
  - Vision blurred [Not Recovered/Not Resolved]
  - Ocular hyperaemia [Recovering/Resolving]
  - Headache [Unknown]

NARRATIVE: CASE EVENT DATE: 20131011
